FAERS Safety Report 25797232 (Version 1)
Quarter: 2025Q3

REPORT INFORMATION
  Report Type: Spontaneous
  Country: US (occurrence: US)
  Receive Date: 20250912
  Receipt Date: 20250912
  Transmission Date: 20251020
  Serious: Yes (Hospitalization, Other)
  Sender: NOVO NORDISK
  Company Number: US-NOVOPROD-1518446

PATIENT
  Age: 86 Year
  Sex: Female

DRUGS (1)
  1. VICTOZA [Suspect]
     Active Substance: LIRAGLUTIDE
     Indication: Type 2 diabetes mellitus
     Dates: start: 2015, end: 20250819

REACTIONS (6)
  - Fall [Recovered/Resolved]
  - Hip fracture [Recovered/Resolved]
  - Blood pressure decreased [Recovered/Resolved]
  - Cardiac pacemaker insertion [Recovered/Resolved]
  - Macular degeneration [Unknown]
  - Glycosylated haemoglobin increased [Unknown]

NARRATIVE: CASE EVENT DATE: 20240901
